FAERS Safety Report 9113111 (Version 2)
Quarter: 2013Q1

REPORT INFORMATION
  Report Type: Spontaneous
  Country: BR (occurrence: BR)
  Receive Date: 20130211
  Receipt Date: 20130321
  Transmission Date: 20140127
  Serious: Yes (Hospitalization)
  Sender: FDA-Public Use
  Company Number: PHHY2013BR012631

PATIENT
  Sex: Female
  Weight: 65 kg

DRUGS (5)
  1. EXELON PATCH [Suspect]
     Indication: DEMENTIA ALZHEIMER^S TYPE
     Dosage: 4.6 MG DAILY
     Route: 062
     Dates: start: 201201
  2. RISPERIDONE [Concomitant]
     Indication: PSYCHOMOTOR HYPERACTIVITY
     Dosage: 1 MG, BID
     Route: 048
  3. HALDOL DECANOATE [Concomitant]
     Indication: PSYCHOMOTOR HYPERACTIVITY
     Dosage: 1 DF, PRN
     Route: 030
  4. CITALOPRAM [Concomitant]
     Indication: DEPRESSION
     Dosage: UNK UKN, UNK
  5. ANTIHYPERTENSIVES [Concomitant]
     Dosage: UNK UKN, UNK

REACTIONS (2)
  - Hallucination [Not Recovered/Not Resolved]
  - Psychomotor hyperactivity [Not Recovered/Not Resolved]
